FAERS Safety Report 5918591-8 (Version None)
Quarter: 2008Q4

REPORT INFORMATION
  Report Type: 
  Country: None (occurrence: None)
  Receive Date: 20081015
  Receipt Date: 20081006
  Transmission Date: 20090506
  Serious: Yes (Hospitalization)
  Sender: FDA-Public Use
  Company Number: FR-ASTRAZENECA-2008CG01453

PATIENT
  Age: 28795 Day
  Sex: Female

DRUGS (5)
  1. PULMICORT-100 [Suspect]
     Indication: CHRONIC OBSTRUCTIVE PULMONARY DISEASE
     Route: 055
     Dates: start: 20080801, end: 20080825
  2. NOCTRAN [Suspect]
     Indication: SLEEP DISORDER
     Dates: start: 20080301, end: 20080824
  3. LASIX [Suspect]
     Indication: HYPERTENSION
     Route: 042
     Dates: start: 20080801, end: 20080825
  4. CORTANCYL [Suspect]
     Indication: RHEUMATOID ARTHRITIS
     Route: 048
     Dates: start: 20080801
  5. HYDROCORTISONE [Suspect]
     Indication: RHEUMATOID ARTHRITIS
     Route: 048
     Dates: start: 20080801, end: 20080825

REACTIONS (4)
  - BLOOD POTASSIUM DECREASED [None]
  - ELECTROCARDIOGRAM QT PROLONGED [None]
  - FALL [None]
  - MALAISE [None]
